FAERS Safety Report 15413134 (Version 1)
Quarter: 2018Q3

REPORT INFORMATION
  Report Type: Spontaneous
  Country: US (occurrence: US)
  Receive Date: 20180917
  Receipt Date: 20180917
  Transmission Date: 20181010
  Serious: No
  Sender: FDA-Public Use
  Company Number: None

PATIENT
  Age: 85 Year
  Sex: Male

DRUGS (1)
  1. CAPECITABINE. [Suspect]
     Active Substance: CAPECITABINE
     Dates: start: 201808

REACTIONS (8)
  - Vomiting [None]
  - Fatigue [None]
  - Diarrhoea [None]
  - Arthralgia [None]
  - Faeces discoloured [None]
  - Nausea [None]
  - Stomatitis [None]
  - Abdominal pain [None]

NARRATIVE: CASE EVENT DATE: 20180915
